FAERS Safety Report 18402817 (Version 2)
Quarter: 2020Q4

REPORT INFORMATION
  Report Type: Spontaneous
  Country: US (occurrence: US)
  Receive Date: 20201019
  Receipt Date: 20201228
  Transmission Date: 20210114
  Serious: Yes (Death)
  Sender: FDA-Public Use
  Company Number: US-JAZZ-2020-US-011583

PATIENT
  Age: 69 Year

DRUGS (1)
  1. ZEPZELCA [Suspect]
     Active Substance: LURBINECTEDIN
     Indication: SMALL CELL LUNG CANCER
     Dosage: 3.2 MILLIGRAM/SQ. METER, QD
     Route: 042
     Dates: start: 20200901

REACTIONS (2)
  - Joint swelling [Fatal]
  - Peripheral swelling [Fatal]

NARRATIVE: CASE EVENT DATE: 20200901
